FAERS Safety Report 12796985 (Version 1)
Quarter: 2016Q3

REPORT INFORMATION
  Report Type: Spontaneous
  Country: US (occurrence: US)
  Receive Date: 20160929
  Receipt Date: 20160929
  Transmission Date: 20161109
  Serious: Yes (Hospitalization)
  Sender: FDA-Public Use
  Company Number: None

PATIENT
  Sex: Female
  Weight: 57.4 kg

DRUGS (4)
  1. ETOPOSIDE (VP-16) [Suspect]
     Active Substance: ETOPOSIDE
     Dates: end: 20160917
  2. IFOSFAMIDE. [Suspect]
     Active Substance: IFOSFAMIDE
     Dates: end: 20160917
  3. VINCRISTINE SULFATE. [Suspect]
     Active Substance: VINCRISTINE SULFATE
     Dates: end: 20160806
  4. CYCLOPHOSPHAMIDE. [Suspect]
     Active Substance: CYCLOPHOSPHAMIDE
     Dates: end: 20160830

REACTIONS (19)
  - Dehydration [None]
  - Headache [None]
  - Raoultella test positive [None]
  - Decreased activity [None]
  - Weight decreased [None]
  - Blood pressure increased [None]
  - Nausea [None]
  - Decreased appetite [None]
  - Septic shock [None]
  - Hyponatraemia [None]
  - Chills [None]
  - Neutropenia [None]
  - Device related infection [None]
  - Abdominal pain [None]
  - Blood phosphorus decreased [None]
  - Pain [None]
  - Heart rate increased [None]
  - Klebsiella test positive [None]
  - Diarrhoea [None]
